FAERS Safety Report 8301078-5 (Version None)
Quarter: 2012Q2

REPORT INFORMATION
  Report Type: 
  Country: None (occurrence: None)
  Receive Date: 20120420
  Receipt Date: 20120416
  Transmission Date: 20120825
  Serious: Yes (Other)
  Sender: FDA-Public Use
  Company Number: ES-SANOFI-AVENTIS-2012SA026719

PATIENT
  Age: 57 Year
  Sex: Male

DRUGS (5)
  1. ARAVA [Suspect]
     Route: 048
     Dates: start: 20100909
  2. SERC [Suspect]
     Route: 048
     Dates: start: 20100929
  3. ACFOL [Concomitant]
     Route: 048
     Dates: start: 20100217
  4. METHOTREXATE SODIUM [Suspect]
     Route: 048
     Dates: start: 20101118
  5. NEXIUM [Suspect]
     Route: 048
     Dates: start: 20080606

REACTIONS (3)
  - ANOSMIA [None]
  - AGEUSIA [None]
  - SKIN ODOUR ABNORMAL [None]
